FAERS Safety Report 9741552 (Version 1)
Quarter: 2013Q4

REPORT INFORMATION
  Report Type: Spontaneous
  Country: FR (occurrence: FR)
  Receive Date: 20131210
  Receipt Date: 20131210
  Transmission Date: 20140711
  Serious: Yes (Hospitalization)
  Sender: FDA-Public Use
  Company Number: PHHY2013FR141487

PATIENT
  Age: 84 Year
  Sex: Male

DRUGS (2)
  1. ECONAZOLE SANDOZ [Suspect]
     Indication: FUNGAL INFECTION
     Dosage: 2 DF, QD
     Route: 003
     Dates: start: 20090425
  2. PREVISCAN [Interacting]
     Indication: PRODUCT USED FOR UNKNOWN INDICATION
     Dosage: 1 DF, QD
     Route: 048
     Dates: end: 20090428

REACTIONS (1)
  - International normalised ratio increased [Unknown]
